FAERS Safety Report 8456864-8 (Version None)
Quarter: 2012Q2

REPORT INFORMATION
  Report Type: 
  Country: None (occurrence: None)
  Receive Date: 20120621
  Receipt Date: 20120613
  Transmission Date: 20120825
  Serious: Yes (Other)
  Sender: FDA-Public Use
  Company Number: AU-B.I. PHARMACEUTICALS,INC./RIDGEFIELD-2012-AU-01103AU

PATIENT
  Age: 84 Year
  Sex: Female

DRUGS (6)
  1. PRADAXA [Suspect]
  2. RAMIPRIL [Concomitant]
     Indication: CARDIAC DISORDER
  3. PANTOPRAZOLE [Concomitant]
  4. FLUOROURACIL [Concomitant]
     Indication: THYROID DISORDER
  5. LIPITOR [Concomitant]
     Indication: HYPERLIPIDAEMIA
  6. METOPROLOL [Concomitant]
     Indication: CARDIAC DISORDER

REACTIONS (2)
  - RECTAL HAEMORRHAGE [None]
  - COLON CANCER [None]
